FAERS Safety Report 4978992-1 (Version None)
Quarter: 2006Q2

REPORT INFORMATION
  Report Type: 
  Country: None (occurrence: None)
  Receive Date: 20060421
  Receipt Date: 20060301
  Transmission Date: 20061013
  Serious: Yes (Hospitalization, Other)
  Sender: FDA-Public Use
  Company Number: US-BRISTOL-MYERS SQUIBB COMPANY-13299771

PATIENT
  Age: 78 Year
  Sex: Female

DRUGS (2)
  1. PRAVACHOL [Suspect]
  2. PLAVIX [Concomitant]

REACTIONS (9)
  - CARDIAC FAILURE [None]
  - CHEST PAIN [None]
  - DIZZINESS [None]
  - HEPATIC ENZYME INCREASED [None]
  - HYPERHIDROSIS [None]
  - MYOCARDIAL INFARCTION [None]
  - NAUSEA [None]
  - PERIPHERAL COLDNESS [None]
  - VOMITING [None]
